FAERS Safety Report 6361202-0 (Version None)
Quarter: 2009Q3

REPORT INFORMATION
  Report Type: 
  Country: None (occurrence: None)
  Receive Date: 20090918
  Receipt Date: 20090916
  Transmission Date: 20100115
  Serious: Yes (Hospitalization, Disabling, Other)
  Sender: FDA-Public Use
  Company Number: GB-TEVA-209435ISR

PATIENT
  Age: 69 Year
  Sex: Male
  Weight: 55 kg

DRUGS (4)
  1. DOXAZOSIN MESYLATE [Suspect]
     Indication: DYSURIA
  2. DOXAZOSIN MESYLATE [Suspect]
     Indication: UROGENITAL DISORDER
  3. TAMSULOSIN HCL [Suspect]
  4. ATORVASTATIN CALCIUM [Suspect]
     Dates: start: 20070201

REACTIONS (13)
  - ANAEMIA [None]
  - ASTHENIA [None]
  - C-REACTIVE PROTEIN INCREASED [None]
  - DRUG INEFFECTIVE [None]
  - DYSPNOEA [None]
  - FEELING ABNORMAL [None]
  - MUSCULOSKELETAL PAIN [None]
  - NECK PAIN [None]
  - PAIN [None]
  - RENAL PAIN [None]
  - SERUM FERRITIN INCREASED [None]
  - UROGENITAL DISORDER [None]
  - WEIGHT DECREASED [None]
